FAERS Safety Report 5050851-8 (Version None)
Quarter: 2006Q3

REPORT INFORMATION
  Report Type: 
  Country: None (occurrence: None)
  Receive Date: 20060710
  Receipt Date: 20060628
  Transmission Date: 20061208
  Serious: Yes (Other)
  Sender: FDA-Public Use
  Company Number: B0429879A

PATIENT
  Age: 6 Year
  Sex: Male

DRUGS (1)
  1. THIOGUANINE [Suspect]
     Indication: ACUTE LYMPHOCYTIC LEUKAEMIA

REACTIONS (5)
  - CLUBBING [None]
  - HEPATOSPLENOMEGALY [None]
  - HEPATOTOXICITY [None]
  - PLATELET COUNT DECREASED [None]
  - TELANGIECTASIA [None]
